FAERS Safety Report 17816988 (Version 3)
Quarter: 2020Q2

REPORT INFORMATION
  Report Type: Report from Study
  Country: HU (occurrence: HU)
  Receive Date: 20200522
  Receipt Date: 20200622
  Transmission Date: 20200714
  Serious: Yes (Death, Hospitalization, Other)
  Sender: FDA-Public Use
  Company Number: HU-VELOXIS PHARMACEUTICALS-2020VELHU-000480

PATIENT
  Age: 62 Year
  Sex: Male

DRUGS (6)
  1. PREDNISOLON [PREDNISOLONE] [Concomitant]
     Active Substance: PREDNISOLONE
     Indication: IMMUNOSUPPRESSION
     Dosage: 10 MILLIGRAM, QD
     Route: 048
     Dates: start: 20190516, end: 20200501
  2. QUAMATEL [Concomitant]
     Active Substance: FAMOTIDINE
     Indication: PROPHYLAXIS AGAINST GASTROINTESTINAL ULCER
     Dosage: 40 MILLIGRAM, BID
     Route: 048
     Dates: start: 20190516, end: 20200501
  3. FOLIC ACID. [Concomitant]
     Active Substance: FOLIC ACID
     Indication: PRODUCT USED FOR UNKNOWN INDICATION
     Dosage: 1 TAB, BID
     Route: 048
     Dates: end: 20200501
  4. ENVARSUS XR [Suspect]
     Active Substance: TACROLIMUS
     Indication: PROPHYLAXIS AGAINST TRANSPLANT REJECTION
     Dosage: UNK, QD
     Route: 048
     Dates: end: 20200430
  5. MYFORTIC [Concomitant]
     Active Substance: MYCOPHENOLATE SODIUM
     Indication: IMMUNOSUPPRESSION
     Dosage: 540 MILLIGRAM, BID
     Route: 048
     Dates: start: 20190517, end: 20200416
  6. ASPIRIN. [Concomitant]
     Active Substance: ASPIRIN
     Indication: ANTICOAGULANT THERAPY
     Dosage: 100 MILLIGRAM, QD
     Route: 048
     Dates: start: 20190531, end: 20200501

REACTIONS (3)
  - Hepatic failure [Fatal]
  - Renal impairment [Fatal]
  - Hepatitis B reactivation [Fatal]

NARRATIVE: CASE EVENT DATE: 20200317
